FAERS Safety Report 9266184 (Version 1)
Quarter: 2013Q2

REPORT INFORMATION
  Report Type: Report from Study
  Country: CO (occurrence: CO)
  Receive Date: 20130502
  Receipt Date: 20130502
  Transmission Date: 20140414
  Serious: Yes (Other)
  Sender: FDA-Public Use
  Company Number: CO-ROCHE-1219622

PATIENT
  Sex: Female
  Weight: 103.06 kg

DRUGS (5)
  1. RANIBIZUMAB [Suspect]
     Indication: AGE-RELATED MACULAR DEGENERATION
     Route: 050
     Dates: start: 201210
  2. RANIBIZUMAB [Suspect]
     Route: 050
     Dates: start: 201212
  3. LOSARTAN [Concomitant]
  4. VERAPAMIL [Concomitant]
  5. PRAZOSIN [Concomitant]

REACTIONS (4)
  - Hypertension [Recovered/Resolved]
  - Vertigo labyrinthine [Recovering/Resolving]
  - Hypotension [Recovering/Resolving]
  - Visual acuity reduced [Recovering/Resolving]
